FAERS Safety Report 20592678 (Version 1)
Quarter: 2022Q1

REPORT INFORMATION
  Report Type: Spontaneous
  Country: US (occurrence: None)
  Receive Date: 20220314
  Receipt Date: 20220314
  Transmission Date: 20220424
  Serious: No
  Sender: FDA-Public Use
  Company Number: US-ROCHE-2872655

PATIENT
  Sex: Female
  Weight: 59.474 kg

DRUGS (2)
  1. XOLAIR [Suspect]
     Active Substance: OMALIZUMAB
     Indication: Asthma
     Dosage: AN INJECTION IN EACH ARM EVERY WEEK FOR 2 WEEKS ;ONGOING: NO
     Route: 058
     Dates: start: 202104
  2. XOLAIR [Suspect]
     Active Substance: OMALIZUMAB
     Dosage: AN INJECTION IN EACH ARM EVERY FOUR WEEKS ;ONGOING: YES
     Route: 058
     Dates: start: 202104

REACTIONS (2)
  - Off label use [Unknown]
  - No adverse event [Unknown]
